FAERS Safety Report 7271726-X (Version None)
Quarter: 2011Q1

REPORT INFORMATION
  Report Type: 
  Country: None (occurrence: None)
  Receive Date: 20110203
  Receipt Date: 20110126
  Transmission Date: 20110831
  Serious: Yes (Hospitalization)
  Sender: FDA-Public Use
  Company Number: US-B.I. PHARMACEUTICALS,INC./RIDGEFIELD-2011-BP-01612BP

PATIENT
  Sex: Female

DRUGS (10)
  1. QUINAPRIL (ACCUPRIL) [Concomitant]
  2. MULTAQ [Suspect]
     Indication: ATRIAL FIBRILLATION
     Dosage: 800 MG
     Route: 048
     Dates: start: 20101112, end: 20101212
  3. PRADAXA [Suspect]
     Dosage: 300 MG
  4. METFORMIN HYDROCHLORIDE/SITAGLIPTIN (JANUMET) [Concomitant]
  5. XANAX [Concomitant]
  6. NEXIUM [Concomitant]
  7. COREG [Concomitant]
  8. WELLBUTRIN [Concomitant]
  9. LIPITOR [Suspect]
     Dates: start: 20070101, end: 20101212
  10. FUROSEMIDE [Concomitant]

REACTIONS (6)
  - ABDOMINAL DISCOMFORT [None]
  - NAUSEA [None]
  - VOMITING [None]
  - HEPATOCELLULAR INJURY [None]
  - ASPARTATE AMINOTRANSFERASE INCREASED [None]
  - ALANINE AMINOTRANSFERASE INCREASED [None]
